FAERS Safety Report 10625164 (Version 3)
Quarter: 2016Q2

REPORT INFORMATION
  Report Type: Spontaneous
  Country: US (occurrence: US)
  Receive Date: 20141202
  Receipt Date: 20160502
  Transmission Date: 20160815
  Serious: Yes (Hospitalization, Other)
  Sender: FDA-Public Use
  Company Number: ADR-2014-02258

PATIENT
  Age: 31 Year
  Sex: Female

DRUGS (2)
  1. LIORESAL [Suspect]
     Active Substance: BACLOFEN
     Dosage: 25MCG/DAY
     Route: 037
  2. BACLOFEN ORAL [Suspect]
     Active Substance: BACLOFEN
     Dosage: 30MG/DAY
     Route: 048

REACTIONS (12)
  - Neck pain [Unknown]
  - Muscle tightness [Unknown]
  - Hypoaesthesia [Unknown]
  - Abasia [Unknown]
  - Arthralgia [Unknown]
  - Urinary incontinence [Unknown]
  - Sensory loss [Unknown]
  - Movement disorder [Unknown]
  - Nuclear magnetic resonance imaging abnormal [Unknown]
  - Headache [Unknown]
  - Condition aggravated [Unknown]
  - Performance status decreased [Unknown]

NARRATIVE: CASE EVENT DATE: 20141122
